FAERS Safety Report 13615805 (Version 1)
Quarter: 2017Q2

REPORT INFORMATION
  Report Type: Report from Study
  Country: US (occurrence: US)
  Receive Date: 20170606
  Receipt Date: 20170606
  Transmission Date: 20170830
  Serious: Yes (Death, Life-Threatening)
  Sender: FDA-Public Use
  Company Number: US-BION-006368

PATIENT
  Age: 37 Year
  Sex: Female

DRUGS (3)
  1. ESCITALOPRAM [Suspect]
     Active Substance: ESCITALOPRAM OXALATE
  2. MELOXICAM. [Suspect]
     Active Substance: MELOXICAM
  3. LOPERAMIDE UNKNOWN PRODUCT [Suspect]
     Active Substance: LOPERAMIDE

REACTIONS (5)
  - Suicide attempt [Fatal]
  - Lethargy [Unknown]
  - Bradycardia [Unknown]
  - Somnolence [Unknown]
  - Cardiac arrest [Unknown]
